FAERS Safety Report 11159354 (Version 1)
Quarter: 2015Q2

REPORT INFORMATION
  Report Type: Report from Study
  Country: US (occurrence: US)
  Receive Date: 20150603
  Receipt Date: 20150603
  Transmission Date: 20150821
  Serious: Yes (Hospitalization)
  Sender: FDA-Public Use
  Company Number: US-BAYER-2015-279218

PATIENT
  Age: 60 Year
  Sex: Male

DRUGS (1)
  1. NEXAVAR [Suspect]
     Active Substance: SORAFENIB
     Indication: HEPATIC CANCER
     Dosage: 200 MG DAILY
     Route: 048
     Dates: start: 20150522, end: 20150522

REACTIONS (3)
  - Fatigue [None]
  - Insomnia [None]
  - Confusional state [None]

NARRATIVE: CASE EVENT DATE: 20150522
